FAERS Safety Report 6723806-2 (Version None)
Quarter: 2010Q2

REPORT INFORMATION
  Report Type: 
  Country: None (occurrence: None)
  Receive Date: 20100513
  Receipt Date: 20100224
  Transmission Date: 20101027
  Serious: No
  Sender: FDA-Public Use
  Company Number: A0843767A

PATIENT
  Age: 28 Year
  Sex: Female
  Weight: 66.4 kg

DRUGS (7)
  1. TREXIMET [Suspect]
     Indication: MIGRAINE
     Dosage: 1TAB SINGLE DOSE
     Route: 048
     Dates: start: 20100206, end: 20100207
  2. EFFEXOR XR [Suspect]
     Indication: DRUG USE FOR UNKNOWN INDICATION
     Dosage: 75MG THREE TIMES PER DAY
     Route: 048
     Dates: start: 20090107
  3. SEROTONIN [Suspect]
     Indication: DRUG USE FOR UNKNOWN INDICATION
     Route: 048
     Dates: start: 20091214
  4. MAXALT [Suspect]
     Indication: DRUG USE FOR UNKNOWN INDICATION
     Dosage: 10MG THREE TIMES PER DAY
     Route: 048
     Dates: start: 20091214
  5. XANAX [Concomitant]
     Dosage: .5MG AS REQUIRED
     Route: 048
     Dates: start: 20090107
  6. MULTI-VITAMIN [Concomitant]
     Route: 048
  7. DESOGESTREL AND ETHINYL ESTRADIOL [Concomitant]
     Route: 048

REACTIONS (3)
  - DRUG INTERACTION [None]
  - MUSCLE TIGHTNESS [None]
  - TRISMUS [None]
